FAERS Safety Report 22637067 (Version 5)
Quarter: 2023Q4

REPORT INFORMATION
  Report Type: Spontaneous
  Country: US (occurrence: US)
  Receive Date: 20230626
  Receipt Date: 20231025
  Transmission Date: 20240109
  Serious: No
  Sender: FDA-Public Use
  Company Number: US-PFIZER INC-202300226704

PATIENT
  Age: 12 Year
  Sex: Male
  Weight: 34.02 kg

DRUGS (2)
  1. GENOTROPIN [Suspect]
     Active Substance: SOMATROPIN
     Indication: Growth hormone deficiency
     Dosage: UNK, [ONCE A NIGHT, SAID ON CARTRIDGE BOX, 1.4, UNITS UNKNOWN]
  2. GENOTROPIN [Suspect]
     Active Substance: SOMATROPIN
     Dosage: 1.4 MG, 1X/DAY (ONCE A NIGHT, SAID ON CARTRIDGE BOX, 1.4, UNITS UNKNOWN)
     Dates: start: 202306

REACTIONS (2)
  - Drug dose omission by device [Unknown]
  - Device breakage [Unknown]
